FAERS Safety Report 5804190-5 (Version None)
Quarter: 2008Q3

REPORT INFORMATION
  Report Type: 
  Country: None (occurrence: None)
  Receive Date: 20080707
  Receipt Date: 20080624
  Transmission Date: 20090109
  Serious: Yes (Hospitalization, Disabling, Other)
  Sender: FDA-Public Use
  Company Number: 2008AP001603

PATIENT
  Age: 50 Year
  Sex: Female

DRUGS (7)
  1. HALOPERIDOL DECANOATE [Suspect]
     Indication: AGITATION
     Dosage: INJECT; IV
  2. HALOPERIDOL DECANOATE [Suspect]
  3. HALOPERIDOL LACTATE [Suspect]
  4. ALPRAZOLAM [Concomitant]
  5. AMLODIPINE BESYLATE [Concomitant]
  6. HYDROCHLOROTHIAZIDE [Concomitant]
  7. MORPHINE [Concomitant]

REACTIONS (8)
  - ABASIA [None]
  - DRY MOUTH [None]
  - HALLUCINATION [None]
  - INCORRECT ROUTE OF DRUG ADMINISTRATION [None]
  - JOINT SWELLING [None]
  - OEDEMA PERIPHERAL [None]
  - PAIN IN EXTREMITY [None]
  - RHABDOMYOLYSIS [None]
